FAERS Safety Report 6928325-6 (Version None)
Quarter: 2010Q3

REPORT INFORMATION
  Report Type: 
  Country: None (occurrence: None)
  Receive Date: 20100817
  Receipt Date: 20100805
  Transmission Date: 20110219
  Serious: Yes (Other)
  Sender: FDA-Public Use
  Company Number: US-CELGENEUS-163-21880-10071005

PATIENT
  Sex: Female
  Weight: 77.18 kg

DRUGS (1)
  1. REVLIMID [Suspect]
     Indication: MANTLE CELL LYMPHOMA
     Route: 048
     Dates: start: 20100701

REACTIONS (12)
  - AGEUSIA [None]
  - BLOOD GLUCOSE DECREASED [None]
  - DIZZINESS [None]
  - DRY MOUTH [None]
  - EYE HAEMORRHAGE [None]
  - HYPOAESTHESIA ORAL [None]
  - HYPOTENSION [None]
  - MALAISE [None]
  - NASOPHARYNGITIS [None]
  - PHARYNGEAL OEDEMA [None]
  - PRURITUS GENERALISED [None]
  - VASODILATATION [None]
